FAERS Safety Report 16667055 (Version 2)
Quarter: 2020Q2

REPORT INFORMATION
  Report Type: Spontaneous
  Country: US (occurrence: US)
  Receive Date: 20190805
  Receipt Date: 20200416
  Transmission Date: 20200713
  Serious: Yes (Other)
  Sender: FDA-Public Use
  Company Number: US-GILEAD-2019-0421697

PATIENT
  Age: 50 Year
  Sex: Female

DRUGS (59)
  1. TRUVADA [Suspect]
     Active Substance: EMTRICITABINE\TENOFOVIR DISOPROXIL FUMARATE
     Indication: HIV INFECTION
     Dosage: 1 DOSAGE FORM, QD
     Route: 048
     Dates: start: 2008, end: 2018
  2. MIRTAZAPINE. [Concomitant]
     Active Substance: MIRTAZAPINE
  3. REYATAZ [Concomitant]
     Active Substance: ATAZANAVIR SULFATE
  4. MELOXICAM. [Concomitant]
     Active Substance: MELOXICAM
  5. AMOXICILLIN. [Concomitant]
     Active Substance: AMOXICILLIN
  6. CLOTRIMAZOLE. [Concomitant]
     Active Substance: CLOTRIMAZOLE
  7. LEVOFLOXACIN. [Concomitant]
     Active Substance: LEVOFLOXACIN
  8. SENNA TABS [Concomitant]
     Active Substance: SENNOSIDES A AND B
  9. METHYLPREDNISOLONE. [Concomitant]
     Active Substance: METHYLPREDNISOLONE
  10. NORVIR [Concomitant]
     Active Substance: RITONAVIR
  11. OXYCODONE HYDROCHLORIDE. [Concomitant]
     Active Substance: OXYCODONE HYDROCHLORIDE
  12. TERCONAZOLE. [Concomitant]
     Active Substance: TERCONAZOLE
  13. NAPROXEN. [Concomitant]
     Active Substance: NAPROXEN
  14. DICLOFENAC SODIUM. [Concomitant]
     Active Substance: DICLOFENAC SODIUM
  15. DIAZEPAM. [Concomitant]
     Active Substance: DIAZEPAM
  16. MOBIC [Concomitant]
     Active Substance: MELOXICAM
  17. VOLTAREN ACTI [Concomitant]
     Active Substance: DICLOFENAC POTASSIUM
  18. TRUVADA [Suspect]
     Active Substance: EMTRICITABINE\TENOFOVIR DISOPROXIL FUMARATE
     Dosage: 1 DOSAGE FORM, QD
     Route: 048
     Dates: start: 2008, end: 201703
  19. THERA-M [Concomitant]
  20. NICOTROL [Concomitant]
     Active Substance: NICOTINE
  21. CIPROFLOXACIN. [Concomitant]
     Active Substance: CIPROFLOXACIN
  22. CLARITHROMYCIN. [Concomitant]
     Active Substance: CLARITHROMYCIN
  23. TRAZODONE [Concomitant]
     Active Substance: TRAZODONE HYDROCHLORIDE
  24. DOCUSATE [Concomitant]
     Active Substance: DOCUSATE
  25. CITRACAL + D [CALCIUM CITRATE;COLECALCIFEROL] [Concomitant]
     Active Substance: CALCIUM CITRATE\CHOLECALCIFEROL
  26. VITAMIN D3 [Concomitant]
     Active Substance: CHOLECALCIFEROL
  27. TERBINAFINE. [Concomitant]
     Active Substance: TERBINAFINE
  28. ROXICODONE [Concomitant]
     Active Substance: OXYCODONE HYDROCHLORIDE
  29. CRUEX [CALCIUM UNDECENOATE] [Concomitant]
  30. MORPHINE SULFATE. [Concomitant]
     Active Substance: MORPHINE SULFATE
  31. SALINE NASAL MIST [Concomitant]
  32. TIZANIDINE HYDROCHLORIDE. [Concomitant]
     Active Substance: TIZANIDINE HYDROCHLORIDE
  33. CICLOPIROX. [Concomitant]
     Active Substance: CICLOPIROX
  34. BISMATROL [Concomitant]
     Active Substance: BISMUTH SUBSALICYLATE
  35. MAGNESIUM OXIDE. [Concomitant]
     Active Substance: MAGNESIUM OXIDE
  36. AMMONIUM LACTATE. [Concomitant]
     Active Substance: AMMONIUM LACTATE
  37. CEFADROXIL. [Concomitant]
     Active Substance: CEFADROXIL
  38. ENOXAPARIN [Concomitant]
     Active Substance: ENOXAPARIN
  39. ASPIRIN 81 [Concomitant]
     Active Substance: ASPIRIN
  40. AMOXI-CLAV [Concomitant]
     Active Substance: AMOXICILLIN\CLAVULANATE POTASSIUM
  41. BACITRACIN. [Concomitant]
     Active Substance: BACITRACIN
  42. PEPTIC RELIEF [BISMUTH SUBSALICYLATE] [Concomitant]
  43. DRONABINOL. [Concomitant]
     Active Substance: DRONABINOL
  44. OYSTER SHELL CALCIUM [Concomitant]
     Active Substance: CALCIUM
  45. DESCOVY [Concomitant]
     Active Substance: EMTRICITABINE\TENOFOVIR ALAFENAMIDE FUMARATE
  46. MECLIZINE HCL [Concomitant]
     Active Substance: MECLIZINE HYDROCHLORIDE
  47. IBUPROFEN. [Concomitant]
     Active Substance: IBUPROFEN
  48. NICOTINE TRANSDERMAL SYSTEM [Concomitant]
     Active Substance: NICOTINE
  49. ANASTROZOLE. [Concomitant]
     Active Substance: ANASTROZOLE
  50. LORATADINE. [Concomitant]
     Active Substance: LORATADINE
  51. OXYCODONE/APAP [OXYCODONE HYDROCHLORIDE;PARACETAMOL] [Concomitant]
  52. ENDOCET [Concomitant]
     Active Substance: ACETAMINOPHEN\OXYCODONE HYDROCHLORIDE
  53. SERTRALINE HCL [Concomitant]
     Active Substance: SERTRALINE HYDROCHLORIDE
  54. LOPERAMIDE [Concomitant]
     Active Substance: LOPERAMIDE
  55. OMEPRAZOLE. [Concomitant]
     Active Substance: OMEPRAZOLE
  56. TIVICAY [Concomitant]
     Active Substance: DOLUTEGRAVIR SODIUM
  57. Q-TUSSIN [Concomitant]
     Active Substance: GUAIFENESIN
  58. CENTRUM SILVER PRO [Concomitant]
  59. TRIXAICIN [Concomitant]
     Active Substance: CAPSICUM OLEORESIN

REACTIONS (6)
  - Emotional distress [Unknown]
  - Anhedonia [Unknown]
  - Osteonecrosis [Not Recovered/Not Resolved]
  - Pain [Unknown]
  - Economic problem [Unknown]
  - Anxiety [Unknown]

NARRATIVE: CASE EVENT DATE: 20150518
